FAERS Safety Report 7328308-0 (Version None)
Quarter: 2011Q1

REPORT INFORMATION
  Report Type: 
  Country: None (occurrence: None)
  Receive Date: 20110224
  Receipt Date: 20110224
  Transmission Date: 20110831
  Serious: Yes (Other)
  Sender: FDA-Public Use
  Company Number: None

PATIENT
  Sex: Male
  Weight: 97.6 kg

DRUGS (6)
  1. ONDANSETRON [Concomitant]
  2. DIPHENHYDRAMINE [Concomitant]
  3. FAMOTIDINE [Concomitant]
  4. DOCETAXEL [Concomitant]
  5. DEXAMETHASONE [Concomitant]
  6. CARBOPLATIN [Suspect]
     Indication: PROSTATE CANCER
     Dosage: 620 MG Q 21 DAYS 042
     Dates: start: 20110203

REACTIONS (5)
  - FLUSHING [None]
  - HYPOTENSION [None]
  - TACHYCARDIA [None]
  - DRUG HYPERSENSITIVITY [None]
  - INFUSION RELATED REACTION [None]
